FAERS Safety Report 20460507 (Version 1)
Quarter: 2022Q1

REPORT INFORMATION
  Report Type: Report from Study
  Country: US (occurrence: US)
  Receive Date: 20220211
  Receipt Date: 20220211
  Transmission Date: 20220423
  Serious: Yes (Hospitalization)
  Sender: FDA-Public Use
  Company Number: US-JAZZ-2021-US-012622

PATIENT
  Age: 8 Year
  Sex: Female
  Weight: 41.6 kg

DRUGS (7)
  1. ASPARAGINASE ERWINIA CHRYSANTHEMI [Suspect]
     Active Substance: ASPARAGINASE ERWINIA CHRYSANTHEMI
     Indication: Acute lymphocytic leukaemia
     Dosage: 34 MILLIGRAM, 3XWEEKLY PER 2W COURSE
     Route: 042
     Dates: start: 20210707
  2. ASPARAGINASE ERWINIA CHRYSANTHEMI [Suspect]
     Active Substance: ASPARAGINASE ERWINIA CHRYSANTHEMI
     Dosage: 66 MILLIGRAM, 3XWEEKLY PER 2W COURSE
     Route: 042
     Dates: end: 20210709
  3. LORAZEPAM [Concomitant]
     Active Substance: LORAZEPAM
     Dosage: 1 MILLIGRAM, Q8H PRN
     Route: 048
     Dates: start: 20210707
  4. VINCRISTINE [Concomitant]
     Active Substance: VINCRISTINE
     Dosage: 2 MILLIGRAM, SINGLE
     Route: 042
     Dates: start: 20210707, end: 20210707
  5. ONDANSETRON [Concomitant]
     Active Substance: ONDANSETRON
     Dosage: 6.45 MILLIGRAM, SINGLE
     Route: 042
     Dates: start: 20210707, end: 20210707
  6. MERCAPTOPURINE [Concomitant]
     Active Substance: MERCAPTOPURINE
     Dosage: 75 MILLIGRAM MON-SAT
     Route: 048
  7. MERCAPTOPURINE [Concomitant]
     Active Substance: MERCAPTOPURINE
     Dosage: 100 MILLIGRAM, SUN
     Route: 048

REACTIONS (1)
  - Abdominal pain [Recovered/Resolved]

NARRATIVE: CASE EVENT DATE: 20210709
